FAERS Safety Report 23251979 (Version 1)
Quarter: 2023Q4

REPORT INFORMATION
  Report Type: Spontaneous
  Country: GB (occurrence: GB)
  Receive Date: 20231201
  Receipt Date: 20231201
  Transmission Date: 20240110
  Serious: Yes (Hospitalization, Other)
  Sender: FDA-Public Use
  Company Number: GB-TAKEDA-2023TUS116404

PATIENT
  Age: 82 Year
  Sex: Female

DRUGS (2)
  1. FEBUXOSTAT [Suspect]
     Active Substance: FEBUXOSTAT
     Indication: Gout
     Route: 065
  2. COLCHICINE [Suspect]
     Active Substance: COLCHICINE
     Indication: Gout
     Dosage: 500 MILLIGRAM, BID
     Route: 065

REACTIONS (2)
  - Neutropenia [Recovered/Resolved]
  - Product use in unapproved indication [Unknown]
